FAERS Safety Report 13967113 (Version 1)
Quarter: 2017Q3

REPORT INFORMATION
  Report Type: Spontaneous
  Country: DE (occurrence: DE)
  Receive Date: 20170914
  Receipt Date: 20170914
  Transmission Date: 20171128
  Serious: Yes (Hospitalization)
  Sender: FDA-Public Use
  Company Number: DE-TORRENT-00007049

PATIENT
  Age: 89 Year
  Sex: Female

DRUGS (5)
  1. FENTANYL. [Interacting]
     Active Substance: FENTANYL
  2. MACROGOL [Concomitant]
     Active Substance: POLYETHYLENE GLYCOLS
  3. SIMVASTATIN. [Interacting]
     Active Substance: SIMVASTATIN
  4. RISPERIDONE. [Suspect]
     Active Substance: RISPERIDONE
  5. PIPAMPERONE HYDROCHLORIDE [Interacting]
     Active Substance: PIPAMPERONE HYDROCHLORIDE

REACTIONS (7)
  - Fatigue [Recovered/Resolved]
  - Sedation [Recovered/Resolved]
  - Sedation [Recovered/Resolved]
  - Restlessness [Recovered/Resolved]
  - Drug interaction [Unknown]
  - Mood swings [Recovered/Resolved]
  - Drug effect prolonged [Recovered/Resolved]

NARRATIVE: CASE EVENT DATE: 201408
